FAERS Safety Report 23255968 (Version 2)
Quarter: 2023Q4

REPORT INFORMATION
  Report Type: Report from Study
  Country: FR (occurrence: FR)
  Receive Date: 20231204
  Receipt Date: 20231222
  Transmission Date: 20240109
  Serious: Yes (Life-Threatening, Hospitalization)
  Sender: FDA-Public Use
  Company Number: FR-SA-SAC20231201000176

PATIENT
  Age: 62 Year
  Sex: Female

DRUGS (8)
  1. ISATUXIMAB [Suspect]
     Active Substance: ISATUXIMAB
     Indication: Plasma cell myeloma
     Dosage: 10 MG/KG, DAYS 1, 8, 15, AND 22
     Route: 041
     Dates: start: 20221227, end: 20221227
  2. ISATUXIMAB [Suspect]
     Active Substance: ISATUXIMAB
     Dosage: 10 MG/KG, DAYS 1, 8, 15, AND 22
     Route: 041
     Dates: start: 20230620
  3. CARFILZOMIB [Suspect]
     Active Substance: CARFILZOMIB
     Indication: Plasma cell myeloma
     Dosage: 56 MG/M2, DAYS 8 AND 15
     Route: 042
     Dates: start: 20221227, end: 20221227
  4. CARFILZOMIB [Suspect]
     Active Substance: CARFILZOMIB
     Dosage: 56 MG/M2, DAYS 8 AND 15
     Route: 042
     Dates: start: 20230620, end: 20230620
  5. LENALIDOMIDE [Suspect]
     Active Substance: LENALIDOMIDE
     Indication: Plasma cell myeloma
     Dosage: 25 MG, 21/28 DAYS/MONTH
     Route: 048
     Dates: start: 20221227, end: 20221227
  6. LENALIDOMIDE [Suspect]
     Active Substance: LENALIDOMIDE
     Dosage: 25 MG, 21/28 DAYS/MONTH
     Route: 048
     Dates: start: 20230626, end: 20230626
  7. DEXAMETHASONE [Suspect]
     Active Substance: DEXAMETHASONE
     Indication: Plasma cell myeloma
     Dosage: 40 MG, DAYS 1, 8, 15 AND 22 WEEKLY
     Route: 042
     Dates: start: 20221227, end: 20221227
  8. DEXAMETHASONE [Suspect]
     Active Substance: DEXAMETHASONE
     Dosage: 40 MG, DAYS 1, 8, 15 AND 22 WEEKLY
     Route: 042
     Dates: start: 20230620, end: 20230620

REACTIONS (1)
  - Pneumocystis jirovecii pneumonia [Recovered/Resolved]

NARRATIVE: CASE EVENT DATE: 20231126
